FAERS Safety Report 6709515-4 (Version None)
Quarter: 2010Q2

REPORT INFORMATION
  Report Type: 
  Country: None (occurrence: None)
  Receive Date: 20100504
  Receipt Date: 20100426
  Transmission Date: 20101027
  Serious: Yes (Life-Threatening, Hospitalization)
  Sender: FDA-Public Use
  Company Number: NL-PFIZER INC-2010028526

PATIENT
  Age: 39 Year
  Sex: Female
  Weight: 60 kg

DRUGS (2)
  1. CHAMPIX [Suspect]
     Indication: SMOKING CESSATION THERAPY
     Dosage: 0.5 MG, UNK
     Dates: start: 20100110, end: 20100227
  2. IBUPROFEN [Suspect]
     Dosage: 400 MG, UNK
     Dates: start: 20100201, end: 20100207

REACTIONS (8)
  - BLOOD LACTATE DEHYDROGENASE INCREASED [None]
  - HAEMOGLOBIN DECREASED [None]
  - HAEMOLYSIS [None]
  - HAEMORRHAGIC DIATHESIS [None]
  - INFLUENZA LIKE ILLNESS [None]
  - PYREXIA [None]
  - THROMBOTIC THROMBOCYTOPENIC PURPURA [None]
  - VOMITING [None]
